FAERS Safety Report 5581101-1 (Version None)
Quarter: 2007Q4

REPORT INFORMATION
  Report Type: 
  Country: None (occurrence: None)
  Receive Date: 20071130
  Receipt Date: 20070714
  Transmission Date: 20080405
  Serious: No
  Sender: FDA-Public Use
  Company Number: US200707003763

PATIENT
  Age: 65 Year
  Sex: Female

DRUGS (3)
  1. BYETTA [Suspect]
     Indication: TYPE 2 DIABETES MELLITUS
     Dosage: 10 UG, UNKNOWN, SUBCUTANEOUS
     Route: 058
     Dates: start: 20050101, end: 20050101
  2. LANTUS [Concomitant]
  3. DRUG USED IN DIABETES [Concomitant]

REACTIONS (1)
  - BLOOD GLUCOSE INCREASED [None]
